FAERS Safety Report 12728515 (Version 1)
Quarter: 2016Q3

REPORT INFORMATION
  Report Type: Spontaneous
  Country: BR (occurrence: BR)
  Receive Date: 20160909
  Receipt Date: 20160909
  Transmission Date: 20161109
  Serious: Yes (Other)
  Sender: FDA-Public Use
  Company Number: BR-PFIZER INC-2016418746

PATIENT
  Age: 70 Year
  Sex: Female
  Weight: 54 kg

DRUGS (2)
  1. FRONTAL [Suspect]
     Active Substance: ALPRAZOLAM
     Indication: SLEEP DISORDER THERAPY
     Dosage: ONE TABLET AND A HALF (1.5 MG), DAILY
     Route: 048
     Dates: start: 2012, end: 2013
  2. FRONTAL [Suspect]
     Active Substance: ALPRAZOLAM
     Indication: MUSCLE CONTRACTURE

REACTIONS (2)
  - Abasia [Not Recovered/Not Resolved]
  - Neuromyopathy [Unknown]

NARRATIVE: CASE EVENT DATE: 2013
